FAERS Safety Report 4290007-X (Version None)
Quarter: 2004Q1

REPORT INFORMATION
  Report Type: 
  Country: None (occurrence: None)
  Receive Date: 20040210
  Receipt Date: 20040205
  Transmission Date: 20041129
  Serious: Yes (Hospitalization)
  Sender: FDA-Public Use
  Company Number: WAES 0402USA00496

PATIENT
  Age: 53 Year
  Sex: Female

DRUGS (2)
  1. BECLOMETHASONE DIPROPIONATE [Concomitant]
     Indication: ASTHMA
  2. PRINIVIL [Suspect]
     Indication: HYPERTENSION
     Route: 048
     Dates: start: 20040106

REACTIONS (5)
  - PERIORBITAL OEDEMA [None]
  - PRURITUS GENERALISED [None]
  - PRURITUS GENITAL [None]
  - RASH [None]
  - URTICARIA [None]
